FAERS Safety Report 7441910-0 (Version None)
Quarter: 2011Q2

REPORT INFORMATION
  Report Type: 
  Country: None (occurrence: None)
  Receive Date: 20110420
  Receipt Date: 20110405
  Transmission Date: 20111010
  Serious: Yes (Hospitalization, Disabling)
  Sender: FDA-Public Use
  Company Number: DSJ-2011-06655

PATIENT
  Age: 68 Year
  Sex: Male

DRUGS (10)
  1. CONIEL (BENIDIPINE HYDROCHLORIDE) (BENIDIPINE HYDROCHLORIDE) [Concomitant]
  2. ASPIRIN [Concomitant]
  3. ALOSENN (SENNA ALEXANDRIA) (SENNA ALEXANDRIA) [Concomitant]
  4. ARGAMATE (CALCIUM POLYSTYRENE SULFONATE) (CALCIUM POLYSTYRENE SULFONAT [Concomitant]
  5. JUSO (SODIUM BICARBONATE) (SODIUM BICARBONATE) [Concomitant]
  6. CRAVIT (LEVOFLOXACIN) (EYE DROPS) 9LEVOFLOXACIN) [Concomitant]
  7. OLMESARTAN MEDOXOMIL [Suspect]
     Indication: ESSENTIAL HYPERTENSION
     Dosage: 5 MG,PER ORAL
     Route: 048
     Dates: start: 20100930, end: 20110317
  8. ALOSITOL (ALLOPURINOL) (ALLIPURINOL) [Concomitant]
  9. FERROMIA (FERROUS CITRATE) (FERROUS CITRATE) [Concomitant]
  10. LASIX [Suspect]
     Indication: PRODUCT USED FOR UNKNOWN INDICATION
     Dosage: 80 MG

REACTIONS (3)
  - NASOPHARYNGITIS [None]
  - RENAL DISORDER [None]
  - HYPOTENSION [None]
